FAERS Safety Report 4486098-3 (Version None)
Quarter: 2004Q4

REPORT INFORMATION
  Report Type: 
  Country: None (occurrence: None)
  Receive Date: 20041021
  Receipt Date: 20041012
  Transmission Date: 20050328
  Serious: Yes (Other)
  Sender: FDA-Public Use
  Company Number: STA-AE-04-MTX-480

PATIENT
  Age: 45 Year
  Sex: Male

DRUGS (2)
  1. METHOTREXATE [Suspect]
     Indication: ARTHRALGIA
     Dosage: 12.5 MG 1X PER 1 WK, ORAL
     Route: 048
  2. LEUCOVORIN CALCIUM [Concomitant]

REACTIONS (4)
  - CEREBRAL INFARCTION [None]
  - CEREBROVASCULAR DISORDER [None]
  - EPILEPSY [None]
  - NUCLEAR MAGNETIC RESONANCE IMAGING ABNORMAL [None]
